FAERS Safety Report 4348100-9 (Version None)
Quarter: 2004Q2

REPORT INFORMATION
  Report Type: 
  Country: None (occurrence: None)
  Receive Date: 20040422
  Receipt Date: 20040413
  Transmission Date: 20050107
  Serious: Yes (Other)
  Sender: FDA-Public Use
  Company Number: 2004-DE-02009GD

PATIENT
  Sex: Male

DRUGS (3)
  1. CYCLOPHOSPHAMIDE [Suspect]
     Indication: LYMPHOCYTIC LEUKAEMIA
  2. CYCLOSPORINE [Suspect]
     Indication: LYMPHOCYTIC LEUKAEMIA
     Dosage: 8-12 MG/KD/D
  3. ATG (ANTILYMPHOCYTE IMMUNOGLOBULIN (HORSE)) [Suspect]
     Indication: LYMPHOCYTIC LEUKAEMIA

REACTIONS (5)
  - APLASIA PURE RED CELL [None]
  - DRUG EFFECT DECREASED [None]
  - HEPATOSPLENOMEGALY [None]
  - PLATELET COUNT DECREASED [None]
  - WHITE BLOOD CELL COUNT DECREASED [None]
